FAERS Safety Report 6463403-X (Version None)
Quarter: 2009Q4

REPORT INFORMATION
  Report Type: 
  Country: None (occurrence: None)
  Receive Date: 20091201
  Receipt Date: 20090914
  Transmission Date: 20100525
  Serious: Yes (Hospitalization)
  Sender: FDA-Public Use
  Company Number: US-AMGEN-QUU364564

PATIENT
  Sex: Male

DRUGS (2)
  1. ENBREL [Suspect]
     Indication: PSORIASIS
     Route: 058
     Dates: end: 20080101
  2. HUMIRA [Concomitant]
     Dates: start: 20080101

REACTIONS (3)
  - CARDIAC FAILURE CONGESTIVE [None]
  - PSORIASIS [None]
  - THERAPEUTIC RESPONSE DECREASED [None]
